FAERS Safety Report 4896848-X (Version None)
Quarter: 2006Q1

REPORT INFORMATION
  Report Type: 
  Country: None (occurrence: None)
  Receive Date: 20060126
  Receipt Date: 20060117
  Transmission Date: 20060701
  Serious: Yes (Hospitalization)
  Sender: FDA-Public Use
  Company Number: FRWYE307117JAN06

PATIENT
  Age: 77 Year
  Sex: Female

DRUGS (6)
  1. BISOPROLOL FUMARATE [Suspect]
     Dosage: ORAL
     Route: 048
  2. NITROGLYCERIN [Suspect]
     Dosage: TRANSDERMAL
     Route: 062
  3. PRAVASTATIN [Suspect]
     Dosage: ORAL
     Route: 048
  4. GLICLAZIDE (GLICLAZIDE) [Suspect]
     Dosage: ORAL
     Route: 048
  5. ASPIRIN [Suspect]
  6. METFORMIN HCL [Suspect]
     Dosage: ORAL
     Route: 048

REACTIONS (4)
  - CARDIAC FAILURE [None]
  - GASTRIC ULCER [None]
  - HAEMOGLOBIN DECREASED [None]
  - MELAENA [None]
